FAERS Safety Report 24262365 (Version 1)
Quarter: 2024Q3

REPORT INFORMATION
  Report Type: Spontaneous
  Country: US (occurrence: US)
  Receive Date: 20240829
  Receipt Date: 20240829
  Transmission Date: 20241017
  Serious: Yes (Other)
  Sender: AMGEN
  Company Number: US-AMGEN-USASP2024169855

PATIENT
  Age: 72 Year
  Sex: Male

DRUGS (2)
  1. KRYSTEXXA [Suspect]
     Active Substance: PEGLOTICASE
     Indication: Gouty tophus
     Dosage: UNK, Q2WK (EVERY 2 WEEKS)
     Route: 065
     Dates: start: 20220903
  2. JYNARQUE [Concomitant]
     Active Substance: TOLVAPTAN
     Indication: Blood pressure abnormal
     Dosage: UNK

REACTIONS (2)
  - Erectile dysfunction [Unknown]
  - Loss of libido [Unknown]
